FAERS Safety Report 18024812 (Version 1)
Quarter: 2020Q3

REPORT INFORMATION
  Report Type: Spontaneous
  Country: US (occurrence: US)
  Receive Date: 20200715
  Receipt Date: 20200715
  Transmission Date: 20201103
  Serious: No
  Sender: FDA-Public Use
  Company Number: None

PATIENT
  Age: 66 Year
  Sex: Female
  Weight: 113.85 kg

DRUGS (3)
  1. DIPHENHYDRAMINE 25MG IN 50ML NS [Concomitant]
     Dates: start: 20200708, end: 20200708
  2. ACETAMINOPHEN 650MG TAB [Concomitant]
     Dates: start: 20200708, end: 20200708
  3. RITUXIMAB. [Suspect]
     Active Substance: RITUXIMAB
     Indication: IMMUNE THROMBOCYTOPENIA
     Dosage: ?          OTHER FREQUENCY:WEEKLY X 4;?
     Route: 042
     Dates: start: 20200708, end: 20200708

REACTIONS (3)
  - Chills [None]
  - Oropharyngeal discomfort [None]
  - Dry mouth [None]

NARRATIVE: CASE EVENT DATE: 20200708
